FAERS Safety Report 4270549-3 (Version None)
Quarter: 2004Q1

REPORT INFORMATION
  Report Type: 
  Country: None (occurrence: None)
  Receive Date: 20040113
  Receipt Date: 20040113
  Transmission Date: 20041129
  Serious: Yes (Life-Threatening, Hospitalization, Disabling)
  Sender: FDA-Public Use
  Company Number: None

PATIENT
  Age: 42 Year
  Sex: Female
  Weight: 49.8957 kg

DRUGS (2)
  1. VIOXX [Suspect]
     Indication: BACK INJURY
     Dosage: 25 MG
     Dates: start: 20030913, end: 20020923
  2. VIOXX [Suspect]
     Indication: CONTUSION
     Dosage: 25 MG
     Dates: start: 20030913, end: 20020923

REACTIONS (2)
  - ANAPHYLACTIC REACTION [None]
  - RENAL PAIN [None]
